FAERS Safety Report 4808400-2 (Version None)
Quarter: 2005Q4

REPORT INFORMATION
  Report Type: 
  Country: None (occurrence: None)
  Receive Date: 20051021
  Receipt Date: 20040219
  Transmission Date: 20060501
  Serious: No
  Sender: FDA-Public Use
  Company Number: JP_040202689

PATIENT
  Age: 41 Year
  Sex: Female
  Weight: 55 kg

DRUGS (4)
  1. ZYPREXA [Suspect]
     Indication: SCHIZOPHRENIA
     Dosage: 10 MG DAY
     Dates: start: 19960911
  2. HUMAN MENOPAUSAL GONADOTROPHIN [Concomitant]
  3. CLOMID (CLOMIFENE CITRATE) [Concomitant]
  4. SOPHIA [Concomitant]

REACTIONS (3)
  - GRANULOCYTOPENIA [None]
  - LYMPHOCYTE PERCENTAGE INCREASED [None]
  - NEUTROPHIL PERCENTAGE DECREASED [None]
